FAERS Safety Report 9498402 (Version 6)
Quarter: 2014Q2

REPORT INFORMATION
  Report Type: Spontaneous
  Country: CA (occurrence: CA)
  Receive Date: 20130904
  Receipt Date: 20140530
  Transmission Date: 20141212
  Serious: Yes (Hospitalization)
  Sender: FDA-Public Use
  Company Number: CA-GLAXOSMITHKLINE-A1030342A

PATIENT
  Age: 50 Year
  Sex: Female
  Weight: 88 kg

DRUGS (10)
  1. BENLYSTA [Suspect]
     Indication: SYSTEMIC LUPUS ERYTHEMATOSUS
     Dosage: 880MG SEE DOSAGE TEXT
     Route: 042
     Dates: start: 20130206
  2. ALEVE [Suspect]
     Indication: SYSTEMIC LUPUS ERYTHEMATOSUS
     Route: 065
  3. LEVOFLOXACIN [Suspect]
     Indication: OROPHARYNGEAL PAIN
     Route: 048
     Dates: start: 201404
  4. PLAQUENIL [Concomitant]
     Indication: SYSTEMIC LUPUS ERYTHEMATOSUS
     Dosage: 400MG PER DAY
     Route: 048
  5. SYNTHROID [Concomitant]
     Dosage: .5MG IN THE MORNING
  6. TESTOSTERONE [Concomitant]
  7. MORPHINE SLOW RELEASE [Concomitant]
  8. GABAPENTIN [Concomitant]
  9. NEXIUM [Concomitant]
  10. VITAMIN B [Concomitant]

REACTIONS (38)
  - Pneumonia [Recovering/Resolving]
  - Pruritus [Recovered/Resolved]
  - Bladder pain [Recovered/Resolved]
  - Uterine pain [Recovered/Resolved]
  - Asthenia [Not Recovered/Not Resolved]
  - Dizziness [Not Recovered/Not Resolved]
  - Feeling abnormal [Not Recovered/Not Resolved]
  - Tinnitus [Unknown]
  - Feeling abnormal [Unknown]
  - Pallor [Unknown]
  - Palpitations [Unknown]
  - Dyspnoea [Unknown]
  - Arthralgia [Unknown]
  - Local swelling [Recovered/Resolved]
  - Pain in extremity [Unknown]
  - Arthralgia [Unknown]
  - Movement disorder [Unknown]
  - Presyncope [Unknown]
  - Chest discomfort [Recovered/Resolved]
  - Blood pressure increased [Recovered/Resolved]
  - Musculoskeletal discomfort [Unknown]
  - Discomfort [Unknown]
  - Dyspnoea [Recovered/Resolved]
  - Hypertension [Recovered/Resolved]
  - Drug ineffective [Unknown]
  - Systemic lupus erythematosus [Recovered/Resolved]
  - Peripheral swelling [Recovered/Resolved]
  - Pyrexia [Recovered/Resolved]
  - Chills [Recovered/Resolved]
  - Decreased appetite [Recovered/Resolved]
  - Fatigue [Recovered/Resolved]
  - Joint swelling [Unknown]
  - Urticaria [Not Recovered/Not Resolved]
  - Oropharyngeal pain [Recovering/Resolving]
  - Ill-defined disorder [Unknown]
  - Asthma [Unknown]
  - Adverse event [Unknown]
  - Surgery [Unknown]
